FAERS Safety Report 5950807-4 (Version None)
Quarter: 2008Q4

REPORT INFORMATION
  Report Type: 
  Country: None (occurrence: None)
  Receive Date: 20081112
  Receipt Date: 20081103
  Transmission Date: 20090506
  Serious: Yes (Other)
  Sender: FDA-Public Use
  Company Number: US-GILEAD-2008-0018864

PATIENT
  Sex: Female
  Weight: 54.48 kg

DRUGS (7)
  1. LETAIRIS [Suspect]
     Indication: PULMONARY ARTERIAL HYPERTENSION
     Route: 048
     Dates: start: 20080816
  2. DIGOXIN [Concomitant]
  3. DIOVAN [Concomitant]
  4. WARFARIN SODIUM [Concomitant]
  5. LASIX [Concomitant]
  6. KLOR-CON [Concomitant]
  7. PROTONIX [Concomitant]

REACTIONS (1)
  - HEPATOMEGALY [None]
